FAERS Safety Report 10075346 (Version 1)
Quarter: 2014Q2

REPORT INFORMATION
  Report Type: Spontaneous
  Country: US (occurrence: US)
  Receive Date: 20140414
  Receipt Date: 20140414
  Transmission Date: 20141212
  Serious: No
  Sender: FDA-Public Use
  Company Number: US-BIOGENIDEC-2014BI032381

PATIENT
  Sex: Female

DRUGS (8)
  1. TECFIDERA [Suspect]
     Indication: MULTIPLE SCLEROSIS
     Dates: start: 20140225
  2. TECFIDERA [Suspect]
     Indication: MULTIPLE SCLEROSIS
     Route: 048
     Dates: start: 20140310
  3. TECFIDERA [Suspect]
     Indication: MULTIPLE SCLEROSIS
     Route: 048
     Dates: start: 20140326, end: 20140331
  4. TOVINZ [Concomitant]
  5. TRAMADOL [Concomitant]
  6. TRAMADOL ER [Concomitant]
  7. TRAZADONE [Concomitant]
  8. LOSARTAN/HCTZ [Concomitant]

REACTIONS (3)
  - Therapy change [Unknown]
  - Adverse event [Unknown]
  - Drug intolerance [Unknown]
